FAERS Safety Report 13327091 (Version 1)
Quarter: 2017Q1

REPORT INFORMATION
  Report Type: Spontaneous
  Country: US (occurrence: US)
  Receive Date: 20170313
  Receipt Date: 20170313
  Transmission Date: 20170428
  Serious: Yes (Other)
  Sender: FDA-Public Use
  Company Number: US-JNJCP-30000373808

PATIENT
  Sex: Female

DRUGS (1)
  1. ROC RETINOL CORREXION DEEP WRINKLE DAILY MOISTURIZER SPF30 [Suspect]
     Active Substance: AVOBENZONE\HOMOSALATE\OCTOCRYLENE\OXYBENZONE
     Indication: PROPHYLAXIS
     Route: 061

REACTIONS (1)
  - Skin cancer [Not Recovered/Not Resolved]
